FAERS Safety Report 4452577-8 (Version None)
Quarter: 2004Q3

REPORT INFORMATION
  Report Type: 
  Country: None (occurrence: None)
  Receive Date: 20040913
  Receipt Date: 20040730
  Transmission Date: 20050211
  Serious: No
  Sender: FDA-Public Use
  Company Number: 2004-BP-06279BP(0)

PATIENT
  Sex: Male

DRUGS (16)
  1. SPIRIVA [Suspect]
     Indication: CHRONIC OBSTRUCTIVE AIRWAYS DISEASE
     Dosage: 18 MCG (18 MCG) IH
     Route: 055
     Dates: start: 20040720
  2. ZOCOR [Concomitant]
  3. PRARDIN [Concomitant]
  4. PRILOSEC [Concomitant]
  5. CENTRIUM SILVER [Concomitant]
  6. ALBUTEROL [Concomitant]
  7. IPRATROPIUM BROMIDE [Concomitant]
  8. CLARITIN [Concomitant]
  9. SINGULAIR [Concomitant]
  10. GLIPIZIDE [Concomitant]
  11. SYNTHROID [Concomitant]
  12. CALAN [Concomitant]
  13. FERROUS GLUCONATE [Concomitant]
  14. ACETYLSALICYLIC ACID SRT [Concomitant]
  15. TESTOSTERONE [Concomitant]
  16. AMBIEN [Concomitant]

REACTIONS (1)
  - DYSPNOEA [None]
